FAERS Safety Report 6606567-7 (Version None)
Quarter: 2010Q1

REPORT INFORMATION
  Report Type: 
  Country: None (occurrence: None)
  Receive Date: 20100226
  Receipt Date: 20100217
  Transmission Date: 20100710
  Serious: Yes (Other)
  Sender: FDA-Public Use
  Company Number: JP-ASTRAZENECA-2010SE06242

PATIENT
  Age: 70 Year

DRUGS (3)
  1. MEROPENEM [Suspect]
     Indication: INFECTION
     Route: 042
     Dates: start: 20090112, end: 20090125
  2. MEROPENEM [Suspect]
     Route: 042
     Dates: start: 20100202
  3. MEROPENEM [Suspect]
     Route: 042

REACTIONS (1)
  - DEPRESSED LEVEL OF CONSCIOUSNESS [None]
